FAERS Safety Report 8069828-3 (Version None)
Quarter: 2012Q1

REPORT INFORMATION
  Report Type: 
  Country: None (occurrence: None)
  Receive Date: 20120125
  Receipt Date: 20120125
  Transmission Date: 20120608
  Serious: No
  Sender: FDA-Public Use
  Company Number: None

PATIENT
  Age: 38 Year
  Sex: Female
  Weight: 60.781 kg

DRUGS (1)
  1. PROPOFOL [Suspect]
     Indication: SEDATIVE THERAPY
     Dosage: DO NOT KNOW
     Route: 042
     Dates: start: 20120122, end: 20120122

REACTIONS (9)
  - DEPRESSED MOOD [None]
  - INSOMNIA [None]
  - FEELING OF DESPAIR [None]
  - DYSGEUSIA [None]
  - ANGER [None]
  - THINKING ABNORMAL [None]
  - FATIGUE [None]
  - MOOD ALTERED [None]
  - DEPRESSION [None]
